FAERS Safety Report 9793620 (Version 2)
Quarter: 2014Q1

REPORT INFORMATION
  Report Type: Spontaneous
  Country: US (occurrence: US)
  Receive Date: 20140102
  Receipt Date: 20140307
  Transmission Date: 20141002
  Serious: No
  Sender: FDA-Public Use
  Company Number: US-AMGEN-USASP2013085431

PATIENT
  Age: 58 Year
  Sex: Male

DRUGS (2)
  1. ENBREL [Suspect]
     Indication: PSORIATIC ARTHROPATHY
     Dosage: 50 MG, QWK
     Route: 065
     Dates: start: 20130729
  2. ENBREL [Suspect]
     Route: 065

REACTIONS (8)
  - Ocular hyperaemia [Not Recovered/Not Resolved]
  - Eyelid margin crusting [Not Recovered/Not Resolved]
  - Fear of injection [Not Recovered/Not Resolved]
  - Musculoskeletal pain [Not Recovered/Not Resolved]
  - Crepitations [Not Recovered/Not Resolved]
  - Arthritis [Not Recovered/Not Resolved]
  - Mobility decreased [Not Recovered/Not Resolved]
  - Injection site vesicles [Not Recovered/Not Resolved]
